FAERS Safety Report 8992643 (Version 2)
Quarter: 2013Q1

REPORT INFORMATION
  Report Type: Spontaneous
  Country: BR (occurrence: BR)
  Receive Date: 20130101
  Receipt Date: 20130125
  Transmission Date: 20140127
  Serious: Yes (Other)
  Sender: FDA-Public Use
  Company Number: PHHY2012BR118976

PATIENT
  Age: 49 None
  Sex: Male
  Weight: 80 kg

DRUGS (6)
  1. SANDOSTATINA LAR [Suspect]
     Indication: PITUITARY TUMOUR
     Dosage: 20 MG, EACH 28 DAYS
     Route: 030
     Dates: start: 2011
  2. SANDOSTATINA LAR [Suspect]
     Dosage: 10 MG, EACH 28 DAYS
     Route: 030
     Dates: start: 201202
  3. DIAZEPAM [Concomitant]
     Indication: ANXIETY
     Dosage: 2 DF, QD
     Route: 048
     Dates: start: 2010
  4. PANTOPRAZOLE [Concomitant]
     Indication: GASTROOESOPHAGEAL REFLUX DISEASE
     Dosage: 1 DF, BID
     Dates: start: 2010
  5. NEBIDO [Concomitant]
     Indication: HORMONE REPLACEMENT THERAPY
     Dosage: 1 DF, EACH THREE MONTHS
     Route: 030
     Dates: start: 2010
  6. FLUDROCORTISONE [Concomitant]
     Dosage: UNK UKN, UNK

REACTIONS (12)
  - Nephrolithiasis [Not Recovered/Not Resolved]
  - Haemochromatosis [Not Recovered/Not Resolved]
  - Cholelithiasis [Not Recovered/Not Resolved]
  - Neoplasm [Not Recovered/Not Resolved]
  - Vision blurred [Recovering/Resolving]
  - Malaise [Recovering/Resolving]
  - Tinnitus [Recovering/Resolving]
  - Nausea [Recovering/Resolving]
  - Vomiting [Recovering/Resolving]
  - Abdominal pain [Recovering/Resolving]
  - Abdominal distension [Recovering/Resolving]
  - Headache [Recovering/Resolving]
